FAERS Safety Report 20526179 (Version 1)
Quarter: 2022Q1

REPORT INFORMATION
  Report Type: Spontaneous
  Country: US (occurrence: None)
  Receive Date: 20220225
  Receipt Date: 20220225
  Transmission Date: 20220423
  Serious: Yes (Disabling)
  Sender: FDA-Public Use
  Company Number: None

PATIENT
  Age: 75 Year
  Sex: Female

DRUGS (14)
  1. KETOROLAC TROMETHAMINE [Suspect]
     Active Substance: KETOROLAC TROMETHAMINE
     Indication: Cataract operation
     Dosage: OTHER QUANTITY : 1 DROP(S);?FREQUENCY : EVERY 6 HOURS;?
     Route: 047
     Dates: start: 20220221, end: 20220224
  2. Valsartin/HCTZ 320/12.5mg [Concomitant]
  3. KCL 20 MEQ [Concomitant]
  4. ATENOLOL [Concomitant]
     Active Substance: ATENOLOL
  5. SIMVASTATIN [Concomitant]
     Active Substance: SIMVASTATIN
  6. OMEPRAZOLE [Concomitant]
     Active Substance: OMEPRAZOLE
  7. LORATADINE [Concomitant]
     Active Substance: LORATADINE
  8. FLONASE [Concomitant]
     Active Substance: FLUTICASONE PROPIONATE
  9. ASTELIN [Concomitant]
     Active Substance: AZELASTINE HYDROCHLORIDE
  10. Vitamin C 500mg [Concomitant]
  11. Vitamin D 2,000IU [Concomitant]
  12. Fish Oil 1200mg (2) [Concomitant]
  13. Tumeric1500 mg.(2) [Concomitant]
  14. Citracal + D3 [Concomitant]

REACTIONS (4)
  - Chapped lips [None]
  - Lip swelling [None]
  - Swelling face [None]
  - Pruritus [None]

NARRATIVE: CASE EVENT DATE: 20220224
